FAERS Safety Report 13659864 (Version 2)
Quarter: 2017Q3

REPORT INFORMATION
  Report Type: Spontaneous
  Country: US (occurrence: US)
  Receive Date: 20170616
  Receipt Date: 20170919
  Transmission Date: 20171127
  Serious: No
  Sender: FDA-Public Use
  Company Number: US-ALLERGAN-1712900US

PATIENT
  Age: 19 Year
  Sex: Female

DRUGS (2)
  1. LILETTA [Suspect]
     Active Substance: LEVONORGESTREL
     Indication: CONTRACEPTION
     Dosage: 52 MG
     Route: 015
     Dates: start: 20170327, end: 20170327
  2. LILETTA [Suspect]
     Active Substance: LEVONORGESTREL
     Dosage: 52 MG
     Route: 015
     Dates: start: 20170518

REACTIONS (1)
  - Device expulsion [Recovered/Resolved]

NARRATIVE: CASE EVENT DATE: 20170327
